FAERS Safety Report 24005486 (Version 1)
Quarter: 2024Q2

REPORT INFORMATION
  Report Type: Spontaneous
  Country: US (occurrence: None)
  Receive Date: 20240622
  Receipt Date: 20240622
  Transmission Date: 20240716
  Serious: Yes (Hospitalization)
  Sender: FDA-Public Use
  Company Number: None

PATIENT
  Age: 92 Year
  Sex: Male

DRUGS (1)
  1. APIXABAN [Suspect]
     Active Substance: APIXABAN
     Indication: Haemorrhage
     Dosage: FREQUENCY : TWICE A DAY;?
     Route: 048
     Dates: start: 20210424, end: 20240424

REACTIONS (4)
  - Melaena [None]
  - Anaemia [None]
  - Hypotension [None]
  - Gastritis [None]

NARRATIVE: CASE EVENT DATE: 20240424
